FAERS Safety Report 18221573 (Version 1)
Quarter: 2020Q3

REPORT INFORMATION
  Report Type: Spontaneous
  Country: US (occurrence: US)
  Receive Date: 20200831
  Receipt Date: 20200831
  Transmission Date: 20201103
  Serious: No
  Sender: FDA-Public Use
  Company Number: None

PATIENT
  Age: 23 Year
  Sex: Female
  Weight: 46.35 kg

DRUGS (3)
  1. XULANE [Suspect]
     Active Substance: ETHINYL ESTRADIOL\NORELGESTROMIN
     Indication: MENSTRUAL CYCLE MANAGEMENT
     Dosage: ?          OTHER STRENGTH:MCG;QUANTITY:1 PATCH(ES);OTHER FREQUENCY:EVERY WEEK;?
     Route: 062
     Dates: start: 20150201, end: 20200525
  2. VIT D [Concomitant]
     Active Substance: VITAMIN D NOS
  3. VIT B?12 [Concomitant]

REACTIONS (3)
  - Weight increased [None]
  - Hepatic neoplasm [None]
  - Abdominal wall disorder [None]

NARRATIVE: CASE EVENT DATE: 20190225
